FAERS Safety Report 23275331 (Version 2)
Quarter: 2024Q3

REPORT INFORMATION
  Report Type: Report from Study
  Country: US (occurrence: US)
  Receive Date: 20231208
  Receipt Date: 20240807
  Transmission Date: 20241016
  Serious: Yes (Hospitalization)
  Sender: SANOFI AVENTIS
  Company Number: US-SA-SAC20231207000075

PATIENT
  Age: 60 Year
  Sex: Male

DRUGS (5)
  1. DUPILUMAB [Suspect]
     Active Substance: DUPILUMAB
     Indication: Asthma
     Dosage: 300 MG, QOW
     Route: 058
     Dates: end: 202311
  2. DUPILUMAB [Suspect]
     Active Substance: DUPILUMAB
     Indication: Dermatitis atopic
     Dosage: 2 DF, 1X
     Route: 058
     Dates: start: 20240718, end: 20240718
  3. DUPILUMAB [Suspect]
     Active Substance: DUPILUMAB
     Dosage: 1 DF
     Route: 058
     Dates: start: 20240720
  4. DUPILUMAB [Suspect]
     Active Substance: DUPILUMAB
     Dosage: 1 DF
     Route: 058
     Dates: start: 20240730
  5. PREDNISONE [Concomitant]
     Active Substance: PREDNISONE
     Dosage: UNK

REACTIONS (6)
  - Asthma [Unknown]
  - Pain [Unknown]
  - Viral infection [Unknown]
  - Back pain [Unknown]
  - Arthralgia [Unknown]
  - Inappropriate schedule of product administration [Unknown]

NARRATIVE: CASE EVENT DATE: 20231101
